FAERS Safety Report 6357377-X (Version None)
Quarter: 2009Q3

REPORT INFORMATION
  Report Type: 
  Country: None (occurrence: None)
  Receive Date: 20090916
  Receipt Date: 20070613
  Transmission Date: 20100115
  Serious: Yes (Other)
  Sender: FDA-Public Use
  Company Number: US-ASTRAZENECA-2006UW11747

PATIENT
  Age: 53 Year
  Sex: Female
  Weight: 105.2 kg

DRUGS (15)
  1. SEROQUEL [Suspect]
     Indication: BIPOLAR DISORDER
     Dosage: 100 - 300 MG
     Route: 048
     Dates: start: 20010403, end: 20061208
  2. SEROQUEL [Suspect]
     Indication: SCHIZOPHRENIA
     Dosage: 100 - 300 MG
     Route: 048
     Dates: start: 20010403, end: 20061208
  3. SEROQUEL [Suspect]
     Indication: DEPRESSION
     Dosage: 100 - 300 MG
     Route: 048
     Dates: start: 20010403, end: 20061208
  4. SEROQUEL [Suspect]
     Route: 048
     Dates: start: 20020101, end: 20050101
  5. SEROQUEL [Suspect]
     Route: 048
     Dates: start: 20020101, end: 20050101
  6. SEROQUEL [Suspect]
     Route: 048
     Dates: start: 20020101, end: 20050101
  7. ABILIFY [Concomitant]
     Dates: start: 20040101, end: 20050101
  8. CLOZARIL [Concomitant]
  9. GEODON [Concomitant]
     Dates: start: 20010101
  10. HALDOL [Concomitant]
     Dates: start: 19890101, end: 20050101
  11. RISPERDAL [Concomitant]
     Dosage: 2 - 3 MG
     Route: 048
     Dates: start: 20010806, end: 20061208
  12. STELAZINE [Concomitant]
     Dates: start: 19800101
  13. LAMICTAL [Concomitant]
     Dosage: 100 - 300 MG
     Route: 048
     Dates: start: 20010806
  14. NEXIUM [Concomitant]
     Route: 048
     Dates: start: 20020722
  15. SYNTHROID [Concomitant]
     Dosage: 0.05 - 0.1 MG
     Route: 048
     Dates: start: 20010806

REACTIONS (3)
  - DIABETES MELLITUS [None]
  - NEUROPATHY PERIPHERAL [None]
  - TYPE 2 DIABETES MELLITUS [None]
